FAERS Safety Report 15938504 (Version 3)
Quarter: 2019Q1

REPORT INFORMATION
  Report Type: Spontaneous
  Country: AU (occurrence: AU)
  Receive Date: 20190208
  Receipt Date: 20190218
  Transmission Date: 20190417
  Serious: Yes (Hospitalization, Other)
  Sender: FDA-Public Use
  Company Number: AU-MYLANLABS-2019M1010810

PATIENT
  Age: 24 Year
  Sex: Male

DRUGS (2)
  1. CLOZARIL [Suspect]
     Active Substance: CLOZAPINE
     Dosage: 200 MILLIGRAM, PM
     Dates: start: 2019, end: 20190202
  2. CLOZARIL [Suspect]
     Active Substance: CLOZAPINE
     Indication: SCHIZOPHRENIA
     Dosage: 275 MILLIGRAM
     Route: 048
     Dates: start: 20190118

REACTIONS (10)
  - Chest pain [Recovered/Resolved]
  - Sinus tachycardia [Unknown]
  - Lethargy [Unknown]
  - Troponin T increased [Recovering/Resolving]
  - Viral upper respiratory tract infection [Unknown]
  - C-reactive protein increased [Unknown]
  - Myocarditis [Unknown]
  - Glomerular filtration rate decreased [Recovered/Resolved]
  - Influenza like illness [Unknown]
  - Nasopharyngitis [Unknown]

NARRATIVE: CASE EVENT DATE: 2019
